FAERS Safety Report 16492830 (Version 1)
Quarter: 2019Q2

REPORT INFORMATION
  Report Type: Spontaneous
  Country: US (occurrence: US)
  Receive Date: 20190628
  Receipt Date: 20190628
  Transmission Date: 20190711
  Serious: No
  Sender: FDA-Public Use
  Company Number: US-INDIVIOR LIMITED-INDV-119373-2019

PATIENT
  Age: 26 Year
  Sex: Female

DRUGS (3)
  1. SUBLOCADE [Suspect]
     Active Substance: BUPRENORPHINE
     Indication: DRUG DEPENDENCE
     Dosage: 300 MILLIGRAM, QMO
     Route: 065
  2. ONDASETRON                         /00955301/ [Concomitant]
     Active Substance: ONDANSETRON
     Dosage: UNK
     Route: 048
  3. ONDASETRON                         /00955301/ [Concomitant]
     Active Substance: ONDANSETRON
     Indication: PRODUCT USED FOR UNKNOWN INDICATION
     Dosage: 4 MILLIGRAM, UNKNOWN
     Route: 030

REACTIONS (1)
  - Nausea [Recovered/Resolved]
